FAERS Safety Report 7903322-2 (Version None)
Quarter: 2011Q4

REPORT INFORMATION
  Report Type: 
  Country: None (occurrence: None)
  Receive Date: 20111109
  Receipt Date: 20111103
  Transmission Date: 20120403
  Serious: No
  Sender: FDA-Public Use
  Company Number: US-PFIZER INC-2011271171

PATIENT
  Sex: Female

DRUGS (1)
  1. FLECTOR [Suspect]
     Indication: BACK PAIN
     Dosage: AS NEEDED
     Route: 062
     Dates: start: 20111102

REACTIONS (1)
  - DRUG INEFFECTIVE [None]
